FAERS Safety Report 5370642-8 (Version None)
Quarter: 2007Q2

REPORT INFORMATION
  Report Type: 
  Country: None (occurrence: None)
  Receive Date: 20070618
  Receipt Date: 20060918
  Transmission Date: 20071010
  Serious: Yes (Hospitalization, Other)
  Sender: FDA-Public Use
  Company Number: PHEH2006US08931

PATIENT
  Age: 66 Year
  Sex: Female

DRUGS (2)
  1. GLEEVEC [Suspect]
     Dosage: 600 MG, QD, ORAL, 400 MG, QD, ORAL
     Route: 047
     Dates: start: 20010601, end: 20060601
  2. GLEEVEC [Suspect]
     Dosage: 600 MG, QD, ORAL, 400 MG, QD, ORAL
     Route: 047
     Dates: end: 20060601

REACTIONS (5)
  - ABDOMINAL PAIN [None]
  - COLITIS [None]
  - DEHYDRATION [None]
  - DIARRHOEA [None]
  - NEUTROPENIA [None]
